FAERS Safety Report 17726979 (Version 8)
Quarter: 2022Q3

REPORT INFORMATION
  Report Type: Report from Study
  Country: GB (occurrence: GB)
  Receive Date: 20200430
  Receipt Date: 20220827
  Transmission Date: 20221027
  Serious: Yes (Hospitalization)
  Sender: FDA-Public Use
  Company Number: None

PATIENT
  Age: 70 Year
  Sex: Female

DRUGS (30)
  1. DOCETAXEL [Suspect]
     Active Substance: DOCETAXEL
     Indication: HER2 positive breast cancer
     Dosage: 132 MG 1 WEEKS
     Route: 042
     Dates: start: 20160728, end: 20160803
  2. FULVESTRANT [Suspect]
     Active Substance: FULVESTRANT
     Indication: HER2 positive breast cancer
     Route: 030
     Dates: start: 20170131, end: 20170228
  3. TRASTUZUMAB [Suspect]
     Active Substance: TRASTUZUMAB
     Indication: HER2 positive breast cancer
     Dosage: LOADING DOSE,NUMBER OF CYCLES PER REGIMEN: 6
     Route: 042
     Dates: start: 20160628, end: 20160628
  4. PERTUZUMAB [Suspect]
     Active Substance: PERTUZUMAB
     Indication: HER2 positive breast cancer
     Dosage: LOADING DOSE, NUMBER OF CYCLES PER REGIMEN: 6
     Route: 042
     Dates: start: 20160728, end: 20160728
  5. FASLODEX [Suspect]
     Active Substance: FULVESTRANT
     Indication: Product used for unknown indication
     Route: 030
     Dates: start: 20170130, end: 20170228
  6. CALCIUM CARBONATE [Concomitant]
     Active Substance: CALCIUM CARBONATE
  7. TEICOPLANIN [Concomitant]
     Active Substance: TEICOPLANIN
  8. CYCLIZINE [Concomitant]
     Active Substance: CYCLIZINE
     Indication: Nausea
     Route: 048
  9. MORPHINE SULFATE [Concomitant]
     Active Substance: MORPHINE SULFATE
  10. ALBUTEROL [Concomitant]
     Active Substance: ALBUTEROL
     Indication: Asthma
     Dosage: INHALER, 2 PUFFS QDS WHEN NECESSARY
     Route: 048
  11. ENOXAPARIN SODIUM [Concomitant]
     Active Substance: ENOXAPARIN SODIUM
  12. MORPHINE SULFATE [Concomitant]
     Active Substance: MORPHINE SULFATE
     Route: 048
     Dates: start: 20170111, end: 20170125
  13. AMOXICILLIN\CLAVULANATE POTASSIUM [Concomitant]
     Active Substance: AMOXICILLIN\CLAVULANATE POTASSIUM
     Dosage: OVER THE COURSE OF 4 DAYS
     Route: 048
     Dates: start: 20160815, end: 20160819
  14. PIPERACILLIN SODIUM\TAZOBACTAM SODIUM [Concomitant]
     Active Substance: PIPERACILLIN SODIUM\TAZOBACTAM SODIUM
     Route: 042
     Dates: start: 20160813
  15. IPRATROPIUM [Concomitant]
     Active Substance: IPRATROPIUM
  16. RANITIDINE [Concomitant]
     Active Substance: RANITIDINE
     Dosage: ALSO RECEIVED 300 MG (300 MILLIGRAM DAILY 150 MG, BID)
     Route: 048
     Dates: start: 20160811
  17. ACETAMINOPHEN [Concomitant]
     Active Substance: ACETAMINOPHEN
     Indication: Abdominal pain lower
     Dosage: ALSO RECEIVED 1000MG, 1000 MILLIGRAM DAILY 500 MG BID
     Route: 048
  18. CALCIUM\CHOLECALCIFEROL [Concomitant]
     Active Substance: CALCIUM\CHOLECALCIFEROL
     Indication: Vitamin D deficiency
     Dosage: 1 TABLET EVERY NIGHT (ON)
     Route: 048
  19. POLYETHYLENE GLYCOL 3350\POTASSIUM CHLORIDE\SODIUM BICARBONATE\SODIUM [Concomitant]
     Active Substance: POLYETHYLENE GLYCOL 3350\POTASSIUM CHLORIDE\SODIUM BICARBONATE\SODIUM CHLORIDE
     Indication: Diarrhoea
     Dosage: 1 OTHER SACHET
     Route: 048
     Dates: start: 20161121, end: 20161122
  20. DIHYDROCODEINE [Concomitant]
     Active Substance: DIHYDROCODEINE
     Indication: Pain
     Route: 048
     Dates: start: 20161116
  21. ALBUTEROL [Concomitant]
     Active Substance: ALBUTEROL
     Dosage: 1 DF (1 PUFF)
     Route: 048
  22. PIPERACILLIN SODIUM\TAZOBACTAM SODIUM [Concomitant]
     Active Substance: PIPERACILLIN SODIUM\TAZOBACTAM SODIUM
     Route: 042
     Dates: start: 20160811, end: 20160813
  23. PERTUZUMAB [Suspect]
     Active Substance: PERTUZUMAB
     Indication: HER2 positive breast cancer
     Dosage: MAINTENANCE DOSE,NUMBER OF CYCLES PER REGIMEN: 6
     Route: 042
     Dates: start: 20160803
  24. PIPERACILLIN SODIUM\TAZOBACTAM SODIUM [Concomitant]
     Active Substance: PIPERACILLIN SODIUM\TAZOBACTAM SODIUM
     Dosage: TIME INTERVAL: 0.33 D
     Route: 042
     Dates: start: 20160811, end: 20160813
  25. DOCETAXEL [Suspect]
     Active Substance: DOCETAXEL
     Indication: HER2 positive breast cancer
     Dosage: 132 MG, QW
     Route: 042
     Dates: start: 20160803
  26. TRASTUZUMAB [Suspect]
     Active Substance: TRASTUZUMAB
     Indication: HER2 positive breast cancer
     Dosage: 399 MG, TIW (NUMBER OF CYCLES PER REGIMEN: 6)
     Route: 042
     Dates: start: 20160824
  27. PIPERACILLIN SODIUM\TAZOBACTAM SODIUM [Concomitant]
     Active Substance: PIPERACILLIN SODIUM\TAZOBACTAM SODIUM
     Dosage: 13.5 MILLIGRAM DAILY 13.5 MG, QD
     Route: 042
     Dates: start: 20160813
  28. PIPERACILLIN SODIUM\TAZOBACTAM SODIUM [Concomitant]
     Active Substance: PIPERACILLIN SODIUM\TAZOBACTAM SODIUM
     Dosage: 13.5 MILLIGRAM DAILY 13.5 MG, QD
     Route: 042
     Dates: start: 20160811
  29. TRASTUZUMAB [Suspect]
     Active Substance: TRASTUZUMAB
     Indication: HER2 positive breast cancer
     Dosage: MAINTENANCE DOSE,NUMBER OF CYCLES PER REGIMEN: 6
     Route: 042
     Dates: start: 20160921
  30. TRASTUZUMAB [Suspect]
     Active Substance: TRASTUZUMAB
     Indication: HER2 positive breast cancer
     Dosage: MAINTENANCE DOSE,NUMBER OF CYCLES PER REGIMEN: 6
     Route: 042
     Dates: start: 20160803, end: 20160824

REACTIONS (5)
  - Constipation [Recovered/Resolved]
  - Abdominal pain lower [Unknown]
  - Overflow diarrhoea [Recovered/Resolved]
  - Abdominal pain [Unknown]
  - Biliary sepsis [Recovered/Resolved with Sequelae]

NARRATIVE: CASE EVENT DATE: 20160907
